FAERS Safety Report 23844896 (Version 3)
Quarter: 2025Q2

REPORT INFORMATION
  Report Type: Spontaneous
  Country: US (occurrence: US)
  Receive Date: 20240511
  Receipt Date: 20250626
  Transmission Date: 20250716
  Serious: Yes (Hospitalization)
  Sender: SANOFI AVENTIS
  Company Number: US-SA-SAC20240403000541

PATIENT
  Sex: Female
  Weight: 91.6 kg

DRUGS (4)
  1. DUPIXENT [Suspect]
     Active Substance: DUPILUMAB
     Indication: Asthma
     Dosage: 300 MG, QOW
     Route: 058
     Dates: start: 2023
  2. MOUNJARO [Concomitant]
     Active Substance: TIRZEPATIDE
  3. TRESIBA [Concomitant]
     Active Substance: INSULIN DEGLUDEC
  4. HUMALOG [Concomitant]
     Active Substance: INSULIN LISPRO

REACTIONS (4)
  - Hospitalisation [Unknown]
  - Amnesia [Unknown]
  - Asthma [Unknown]
  - Inappropriate schedule of product administration [Unknown]
